FAERS Safety Report 15195381 (Version 8)
Quarter: 2022Q1

REPORT INFORMATION
  Report Type: Spontaneous
  Country: GB (occurrence: GB)
  Receive Date: 20180725
  Receipt Date: 20220107
  Transmission Date: 20220424
  Serious: Yes (Other)
  Sender: FDA-Public Use
  Company Number: GB-AUROBINDO-AUR-APL-2018-031227

PATIENT
  Age: 51 Year
  Sex: Female

DRUGS (25)
  1. CARBOCYSTEINE [Interacting]
     Active Substance: CARBOCYSTEINE
     Indication: Product used for unknown indication
     Dosage: 750 MILLIGRAM, ONCE A DAY,(750MG 2 TDS )
     Route: 065
  2. CARBOCYSTEINE [Interacting]
     Active Substance: CARBOCYSTEINE
     Dosage: 750 MILLIGRAM, TWO TIMES A DAY (750 MG, BID)
     Route: 065
  3. RISEDRONATE SODIUM [Interacting]
     Active Substance: RISEDRONATE SODIUM
     Indication: Product used for unknown indication
     Dosage: 35 MILLIGRAM
     Route: 065
  4. DOMPERIDONE [Interacting]
     Active Substance: DOMPERIDONE
     Indication: Product used for unknown indication
     Dosage: 30 MILLIGRAM, ONCE A DAY,(10 MG, TID)
     Route: 065
  5. DOMPERIDONE [Interacting]
     Active Substance: DOMPERIDONE
     Dosage: 10 MILLIGRAM, 3 TIMES A DAY
     Route: 065
  6. DOMPERIDONE [Interacting]
     Active Substance: DOMPERIDONE
     Dosage: 10 MILLIGRAM, ONCE A DAY
     Route: 065
  7. LEVOTHYROXINE [Interacting]
     Active Substance: LEVOTHYROXINE
     Indication: Product used for unknown indication
     Dosage: 75 MILLIGRAM, ONCE A DAY
     Route: 065
  8. LEVOTHYROXINE [Interacting]
     Active Substance: LEVOTHYROXINE
     Dosage: 75 MICROGRAM, DAILY (75 UG, QD)
     Route: 065
  9. PANCRELIPASE AMYLASE\PANCRELIPASE LIPASE\PANCRELIPASE PROTEASE [Interacting]
     Active Substance: PANCRELIPASE AMYLASE\PANCRELIPASE LIPASE\PANCRELIPASE PROTEASE
     Indication: Product used for unknown indication
     Dosage: 30 MILLIGRAM, ONCE A DAY, 10 MG, TID
     Route: 065
  10. PANCRELIPASE AMYLASE\PANCRELIPASE LIPASE\PANCRELIPASE PROTEASE [Interacting]
     Active Substance: PANCRELIPASE AMYLASE\PANCRELIPASE LIPASE\PANCRELIPASE PROTEASE
     Dosage: 10 MILLIGRAM, 3 TIMES A DAY
     Route: 065
  11. PANCRELIPASE AMYLASE\PANCRELIPASE LIPASE\PANCRELIPASE PROTEASE [Interacting]
     Active Substance: PANCRELIPASE AMYLASE\PANCRELIPASE LIPASE\PANCRELIPASE PROTEASE
     Dosage: 10 MILLIGRAM, ONCE A DAY
     Route: 065
  12. IVIGLOB EX [Suspect]
     Active Substance: HUMAN IMMUNOGLOBULIN G
     Indication: Product used for unknown indication
     Dosage: UNK
     Route: 065
  13. ITRACONAZOLE [Interacting]
     Active Substance: ITRACONAZOLE
     Indication: Product used for unknown indication
     Dosage: 100 MILLIGRAM, ONCE A DAY
     Route: 048
  14. PREDNISOLONE [Interacting]
     Active Substance: PREDNISOLONE
     Indication: Product used for unknown indication
     Dosage: 7.5 MILLIGRAM, ONCE A DAY
     Route: 065
  15. LANSOPRAZOLE [Interacting]
     Active Substance: LANSOPRAZOLE
     Indication: Product used for unknown indication
     Dosage: 30 MILLIGRAM, ONCE A DAY
     Route: 065
  16. THEOPHYLLINE ANHYDROUS [Interacting]
     Active Substance: THEOPHYLLINE ANHYDROUS
     Indication: Product used for unknown indication
     Dosage: 400 MILLIGRAM, ONCE A DAY,(200 MG, BID)
     Route: 065
  17. THEOPHYLLINE ANHYDROUS [Interacting]
     Active Substance: THEOPHYLLINE ANHYDROUS
     Dosage: 200 MILLIGRAM, TWO TIMES A DAY, 200 MG, BID
     Route: 065
  18. THEOPHYLLINE ANHYDROUS [Interacting]
     Active Substance: THEOPHYLLINE ANHYDROUS
     Dosage: 200 MILLIGRAM, ONCE A DAY
     Route: 065
  19. HYDROXYCHLOROQUINE [Interacting]
     Active Substance: HYDROXYCHLOROQUINE
     Indication: Product used for unknown indication
     Dosage: 200 MILLIGRAM, ONCE A DAY, 200 MG, QD
     Route: 065
  20. CREON [Suspect]
     Active Substance: PANCRELIPASE AMYLASE\PANCRELIPASE LIPASE\PANCRELIPASE PROTEASE
     Indication: Product used for unknown indication
     Dosage: 10 MILLIGRAM, ONCE A DAY (10 MG, TID)
     Route: 065
  21. CREON [Suspect]
     Active Substance: PANCRELIPASE AMYLASE\PANCRELIPASE LIPASE\PANCRELIPASE PROTEASE
     Dosage: 30 MILLIGRAM, ONCE A DAY (10 MG, TID)
     Route: 065
  22. PROPRANOLOL HYDROCHLORIDE [Concomitant]
     Active Substance: PROPRANOLOL HYDROCHLORIDE
     Indication: Product used for unknown indication
     Dosage: UNK
     Route: 065
  23. THEOPHYLLINE [Concomitant]
     Active Substance: THEOPHYLLINE
     Indication: Product used for unknown indication
     Dosage: UNK
     Route: 065
  24. HUMAN IMMUNOGLOBULIN G [Interacting]
     Active Substance: HUMAN IMMUNOGLOBULIN G
     Indication: Product used for unknown indication
     Dosage: UNK
     Route: 065
  25. PANCREATIN [Concomitant]
     Active Substance: PANCRELIPASE
     Indication: Product used for unknown indication
     Dosage: UNK
     Route: 065

REACTIONS (9)
  - Cushing^s syndrome [Unknown]
  - Adrenal insufficiency [Not Recovered/Not Resolved]
  - Orthostatic hypotension [Unknown]
  - Blood prolactin increased [Unknown]
  - Adrenal suppression [Unknown]
  - Myopathy [Unknown]
  - Galactorrhoea [Unknown]
  - Hyperprolactinaemia [Unknown]
  - Drug interaction [Unknown]
